FAERS Safety Report 7328043-9 (Version None)
Quarter: 2011Q1

REPORT INFORMATION
  Report Type: 
  Country: None (occurrence: None)
  Receive Date: 20110303
  Receipt Date: 20110223
  Transmission Date: 20110831
  Serious: Yes (Hospitalization)
  Sender: FDA-Public Use
  Company Number: JP-ASTELLAS-2011US000757

PATIENT
  Age: 72 Year
  Sex: Male

DRUGS (6)
  1. AMBISOME [Suspect]
     Dosage: 150 MG, UID/QD
     Route: 041
     Dates: start: 20100406, end: 20100410
  2. ITRACONAZOLE [Concomitant]
     Indication: PRODUCT USED FOR UNKNOWN INDICATION
     Dosage: 400 MG, UID/QD
     Route: 065
  3. AMBISOME [Suspect]
     Dosage: 50 MG, UID/QD
     Route: 041
     Dates: start: 20100401, end: 20100401
  4. CHLOR-TRIMETON [Concomitant]
     Indication: PRODUCT USED FOR UNKNOWN INDICATION
     Dosage: UNK
     Route: 065
  5. SOLU-CORTEF [Concomitant]
     Indication: PRODUCT USED FOR UNKNOWN INDICATION
     Dosage: UNK
     Route: 065
  6. AMBISOME [Suspect]
     Indication: PULMONARY MYCOSIS
     Dosage: 150 MG, UID/QD
     Route: 042
     Dates: start: 20100401, end: 20100401

REACTIONS (3)
  - MUSCULAR WEAKNESS [None]
  - PARAESTHESIA [None]
  - RENAL IMPAIRMENT [None]
